FAERS Safety Report 15902570 (Version 1)
Quarter: 2019Q1

REPORT INFORMATION
  Report Type: Report from Study
  Country: US (occurrence: US)
  Receive Date: 20190201
  Receipt Date: 20190201
  Transmission Date: 20190417
  Serious: Yes (Other)
  Sender: FDA-Public Use
  Company Number: US-GILEAD-2019-0388336

PATIENT
  Sex: Female

DRUGS (3)
  1. RANOLAZINE. [Suspect]
     Active Substance: RANOLAZINE
     Dosage: 1000 MG, BID
     Route: 065
  2. RANOLAZINE. [Suspect]
     Active Substance: RANOLAZINE
     Dosage: INCREASE THE DOSE FROM 500MG TO 1000MG TWICE DAILY
     Route: 065
  3. RANOLAZINE. [Suspect]
     Active Substance: RANOLAZINE
     Indication: ANGINA PECTORIS
     Dosage: 500 MG, BID
     Route: 065

REACTIONS (1)
  - Surgery [Unknown]
